FAERS Safety Report 5498797-5 (Version None)
Quarter: 2007Q4

REPORT INFORMATION
  Report Type: 
  Country: None (occurrence: None)
  Receive Date: 20071026
  Receipt Date: 20070814
  Transmission Date: 20080405
  Serious: No
  Sender: FDA-Public Use
  Company Number: A0665275A

PATIENT
  Age: 59 Year
  Sex: Female

DRUGS (8)
  1. ADVAIR DISKUS 100/50 [Suspect]
     Indication: RESPIRATORY TRACT INFECTION
     Dosage: 1PUFF TWICE PER DAY
     Route: 055
     Dates: start: 20070712, end: 20070717
  2. PREDNISONE [Concomitant]
  3. KEFLEX [Concomitant]
  4. PROVENTIL [Concomitant]
  5. ATENOLOL [Concomitant]
  6. HYDROCHLOROTHIAZIDE [Concomitant]
     Dosage: 25MG PER DAY
     Route: 048
  7. DIAZEPAM [Concomitant]
     Dosage: 10MG FOUR TIMES PER DAY
     Route: 048
  8. TYLENOL W/ CODEINE NO. 3 [Concomitant]
     Indication: PAIN
     Dosage: 1TAB FOUR TIMES PER DAY
     Route: 048

REACTIONS (6)
  - MOUTH ULCERATION [None]
  - ORAL PAIN [None]
  - PHARYNGEAL ERYTHEMA [None]
  - STOMATITIS [None]
  - THROAT IRRITATION [None]
  - TONGUE DISORDER [None]
